FAERS Safety Report 25705728 (Version 2)
Quarter: 2025Q3

REPORT INFORMATION
  Report Type: Spontaneous
  Country: CN (occurrence: CN)
  Receive Date: 20250820
  Receipt Date: 20250908
  Transmission Date: 20251021
  Serious: Yes (Hospitalization, Other)
  Sender: PFIZER
  Company Number: CN-PFIZER INC-PV202500099424

PATIENT
  Age: 34 Year
  Sex: Male
  Weight: 105 kg

DRUGS (1)
  1. XYNTHA [Suspect]
     Active Substance: MOROCTOCOG ALFA
     Dosage: TWICE DAILY
     Route: 040

REACTIONS (5)
  - Arthralgia [Unknown]
  - Mobility decreased [Unknown]
  - Condition aggravated [Unknown]
  - Haemophilic arthropathy [Unknown]
  - Therapeutic response shortened [Unknown]
